FAERS Safety Report 23627745 (Version 1)
Quarter: 2024Q1

REPORT INFORMATION
  Report Type: Spontaneous
  Country: US (occurrence: US)
  Receive Date: 20240313
  Receipt Date: 20240313
  Transmission Date: 20240409
  Serious: No
  Sender: FDA-Public Use
  Company Number: US-FreseniusKabi-FK202403911

PATIENT

DRUGS (1)
  1. HEPARIN SODIUM [Suspect]
     Active Substance: HEPARIN SODIUM
     Indication: Coagulation time
     Dosage: INJECTION?TOTAL DOSE OF 23,500U ADMINISTERED IN DIVIDED DOSES IN APPROX 1 HOUR?0733: HEP DOSE: 2500U
     Route: 042

REACTIONS (1)
  - Therapeutic product effect decreased [Unknown]
